FAERS Safety Report 4548306-X (Version None)
Quarter: 2004Q4

REPORT INFORMATION
  Report Type: 
  Country: None (occurrence: None)
  Receive Date: 20041220
  Receipt Date: 20040920
  Transmission Date: 20050328
  Serious: Yes (Hospitalization)
  Sender: FDA-Public Use
  Company Number: US_0410106375

PATIENT

DRUGS (2)
  1. HUMULIN L [Suspect]
     Dosage: 50 U DAY
  2. LANTUS [Concomitant]

REACTIONS (2)
  - BLOOD GLUCOSE DECREASED [None]
  - MEDICATION ERROR [None]
